FAERS Safety Report 4494761-3 (Version None)
Quarter: 2004Q4

REPORT INFORMATION
  Report Type: 
  Country: None (occurrence: None)
  Receive Date: 20041103
  Receipt Date: 20041018
  Transmission Date: 20050328
  Serious: Yes (Death)
  Sender: FDA-Public Use
  Company Number: 2004-BP-10150RO

PATIENT
  Age: 20 Year

DRUGS (1)
  1. HYDROMORPHONE HCL TABLETS, USP, 8 MG (HYDROMORPHONE) [Suspect]

REACTIONS (2)
  - CARDIO-RESPIRATORY ARREST [None]
  - DRUG ABUSER [None]
